FAERS Safety Report 7322208-8 (Version None)
Quarter: 2011Q1

REPORT INFORMATION
  Report Type: 
  Country: None (occurrence: None)
  Receive Date: 20110301
  Receipt Date: 20110223
  Transmission Date: 20110831
  Serious: Yes (Other)
  Sender: FDA-Public Use
  Company Number: US-ASTRAZENECA-2007UW25294

PATIENT
  Age: 549 Month
  Sex: Female
  Weight: 75.7 kg

DRUGS (28)
  1. SEROQUEL [Suspect]
     Route: 048
     Dates: start: 20060611
  2. GLUCOPHAGE [Concomitant]
     Dosage: 500 MG-1000 MG
     Dates: start: 20060611
  3. NEXIUM [Concomitant]
     Indication: GASTROOESOPHAGEAL REFLUX DISEASE
     Dates: start: 20020918
  4. RISPERDAL [Concomitant]
     Indication: BIPOLAR DISORDER
     Dosage: 1-3 MG
     Dates: start: 20000906, end: 20001206
  5. SEROQUEL [Suspect]
     Dosage: 300 MG
     Route: 048
     Dates: start: 20040923, end: 20050106
  6. LITHIUM CARBONATE [Concomitant]
     Dosage: 300-900 MG
     Dates: start: 20000223, end: 20010117
  7. SEROQUEL [Suspect]
     Indication: BIPOLAR DISORDER
     Dosage: 200-600 MG
     Route: 048
     Dates: start: 20001206, end: 20040916
  8. ATENOLOL [Concomitant]
     Dosage: 50 MG-100 MG
     Dates: start: 20020918
  9. NEXIUM [Concomitant]
     Indication: HYPERTRIGLYCERIDAEMIA
     Dates: start: 20020918
  10. ZYPREXA [Concomitant]
     Indication: BIPOLAR DISORDER
     Dosage: 10 MG
     Dates: start: 19990901, end: 20000908
  11. LEXAPRO [Concomitant]
     Dates: start: 20041203
  12. MAXZIDE [Concomitant]
     Dates: start: 20020220
  13. CELEXA [Concomitant]
     Route: 048
     Dates: start: 20020919
  14. TOPAMAX [Concomitant]
     Dosage: 100 MG-200 MG
     Dates: start: 20020918
  15. TRICOR [Concomitant]
     Dates: start: 20020918
  16. TRILEPTAL [Concomitant]
     Dosage: 300 MG
     Dates: start: 20030702, end: 20040602
  17. VYTORIN [Concomitant]
     Dates: start: 20050308
  18. SEROQUEL [Suspect]
     Route: 048
     Dates: start: 20030220
  19. GLUCOPHAGE [Concomitant]
     Dates: start: 20050308
  20. PROTONIX [Concomitant]
     Route: 048
     Dates: start: 20020220
  21. SEROQUEL [Suspect]
     Dosage: STARTED WITH 25 MG
     Route: 048
     Dates: start: 20001206
  22. SEROQUEL [Suspect]
     Route: 048
     Dates: start: 20020919
  23. SEROQUEL [Suspect]
     Dosage: 300-600 MG
     Route: 048
     Dates: start: 20050108
  24. TEGRETOL [Concomitant]
     Dosage: 100 MG-400 MG
     Route: 048
     Dates: start: 20060611
  25. REQUIP [Concomitant]
     Dates: start: 20060611
  26. LAMICTAL [Concomitant]
     Dosage: 25-100 MG
     Dates: start: 20040602, end: 20050101
  27. DEPAKOTE [Concomitant]
     Dates: start: 19980101, end: 19990101
  28. SULINDAC [Concomitant]
     Dates: start: 20050308

REACTIONS (26)
  - NEUROPATHY PERIPHERAL [None]
  - BACK PAIN [None]
  - INTERVERTEBRAL DISC DISORDER [None]
  - RADICULOPATHY [None]
  - CARDIAC DISORDER [None]
  - GASTROINTESTINAL DISORDER [None]
  - CORONARY ARTERY DISEASE [None]
  - UTERINE HAEMORRHAGE [None]
  - WEIGHT INCREASED [None]
  - INTERVERTEBRAL DISC PROTRUSION [None]
  - ARTHRALGIA [None]
  - OVERDOSE [None]
  - INTERVERTEBRAL DISC DISPLACEMENT [None]
  - TYPE 2 DIABETES MELLITUS [None]
  - ARTERIOSCLEROSIS CORONARY ARTERY [None]
  - DIABETES MELLITUS [None]
  - ANGINA PECTORIS [None]
  - PAIN IN EXTREMITY [None]
  - TREMOR [None]
  - ARTHRITIS [None]
  - OSTEOARTHRITIS [None]
  - MUSCLE INJURY [None]
  - ASPIRATION JOINT [None]
  - CONSTIPATION [None]
  - GASTROOESOPHAGEAL REFLUX DISEASE [None]
  - VISION BLURRED [None]
